FAERS Safety Report 20985301 (Version 2)
Quarter: 2022Q3

REPORT INFORMATION
  Report Type: Report from Study
  Country: IT (occurrence: IT)
  Receive Date: 20220621
  Receipt Date: 20220705
  Transmission Date: 20221027
  Serious: Yes (Other)
  Sender: FDA-Public Use
  Company Number: IT-JNJFOC-20220624308

PATIENT

DRUGS (4)
  1. STELARA [Suspect]
     Active Substance: USTEKINUMAB
     Indication: Crohn^s disease
     Dosage: STANDARD INDUCTION AT BASELINE AT A DOSE BASED ON WEIGHT RANGES (LESS THAN 55 KG - 260 MG; 5585 KG
     Route: 040
  2. STELARA [Suspect]
     Active Substance: USTEKINUMAB
     Dosage: AFTER 8 WEEKS
     Route: 058
  3. STELARA [Suspect]
     Active Substance: USTEKINUMAB
     Route: 058
  4. STELARA [Suspect]
     Active Substance: USTEKINUMAB
     Route: 058

REACTIONS (8)
  - Intestinal obstruction [Unknown]
  - Drug hypersensitivity [Unknown]
  - Headache [Unknown]
  - Arthropathy [Unknown]
  - Renal colic [Unknown]
  - Skin reaction [Unknown]
  - Arthralgia [Unknown]
  - Treatment failure [Unknown]
